FAERS Safety Report 25582479 (Version 1)
Quarter: 2025Q3

REPORT INFORMATION
  Report Type: Spontaneous
  Country: EU (occurrence: EU)
  Receive Date: 20250720
  Receipt Date: 20250720
  Transmission Date: 20251021
  Serious: Yes (Other)
  Sender: AUROBINDO
  Company Number: EU-SCD-015621

PATIENT
  Age: 10 Year
  Sex: Male

DRUGS (1)
  1. AMOXICILLIN [Suspect]
     Active Substance: AMOXICILLIN
     Indication: Pneumonia
     Route: 065

REACTIONS (4)
  - Acute myopia [Recovered/Resolved]
  - Flat anterior chamber of eye [Recovered/Resolved]
  - Choroidal effusion [Recovered/Resolved]
  - Refraction disorder [Unknown]
